FAERS Safety Report 9525999 (Version 1)
Quarter: 2013Q1

REPORT INFORMATION
  Report Type: Spontaneous
  Country: US (occurrence: None)
  Receive Date: 20130314
  Receipt Date: 20130314
  Transmission Date: 20140127
  Serious: No
  Sender: FDA-Public Use
  Company Number: 1302USA000110

PATIENT
  Age: 57 Year
  Sex: Male
  Weight: 94.3 kg

DRUGS (7)
  1. PEGINTRON [Suspect]
     Dosage: 150 MICROGRAM (0.5 ML), SUBCUTANEOUS
     Route: 058
  2. VICTRELIS [Suspect]
  3. RIBAVIRIN (RIBAVIRIN) TABLET, 200MG [Suspect]
  4. HUMIRA (ADALIMUMAB) OPEN LABEL [Concomitant]
  5. IBUPROFEN [Concomitant]
  6. METHOCARBAMOL [Concomitant]
  7. OXYCODONE [Concomitant]

REACTIONS (11)
  - Dysgeusia [None]
  - Vision blurred [None]
  - Crying [None]
  - Weight decreased [None]
  - Diarrhoea [None]
  - Disturbance in attention [None]
  - Dizziness [None]
  - Dyspnoea [None]
  - Fatigue [None]
  - Nausea [None]
  - Irritability [None]
